FAERS Safety Report 6714039-4 (Version None)
Quarter: 2010Q2

REPORT INFORMATION
  Report Type: 
  Country: None (occurrence: None)
  Receive Date: 20100506
  Receipt Date: 20100430
  Transmission Date: 20101027
  Serious: Yes (Life-Threatening, Hospitalization, Disabling, Other)
  Sender: FDA-Public Use
  Company Number: PHHO2010US06479

PATIENT
  Sex: Female
  Weight: 48.073 kg

DRUGS (17)
  1. AFINITOR [Suspect]
     Indication: ADENOCARCINOMA
     Dosage: UNK
     Dates: start: 20100414
  2. CARBOPLATIN COMP-CAB+ [Suspect]
     Indication: ADENOCARCINOMA
     Dosage: UNK
     Route: 042
     Dates: start: 20100414, end: 20100414
  3. ETOPOSIDE COMP-ETO+ [Suspect]
     Indication: ADENOCARCINOMA
     Dosage: UNK
     Route: 042
     Dates: start: 20100414, end: 20100416
  4. FOSAMAX [Concomitant]
  5. ASPIRIN [Concomitant]
  6. LOTENSIN HCT [Concomitant]
  7. CALCIUM [Concomitant]
  8. COREG [Concomitant]
  9. IRON [Concomitant]
  10. LACTULOSE [Concomitant]
  11. LORAZEPAM [Concomitant]
  12. MEGACE [Concomitant]
  13. GLUCOPHAGE [Concomitant]
  14. METFORMIN [Concomitant]
  15. ZOFRAN [Concomitant]
  16. PRAVACHOL [Concomitant]
  17. COMPAZINE [Concomitant]

REACTIONS (19)
  - ABASIA [None]
  - AORTIC VALVE INCOMPETENCE [None]
  - ASTHENIA [None]
  - BRAIN STEM INFARCTION [None]
  - CEREBRAL HAEMORRHAGE [None]
  - CEREBRAL INFARCTION [None]
  - COMA [None]
  - CONFUSIONAL STATE [None]
  - DIASTOLIC DYSFUNCTION [None]
  - DYSARTHRIA [None]
  - HAEMOGLOBIN DECREASED [None]
  - NEUTROPENIA [None]
  - PERICARDIAL EFFUSION [None]
  - PLATELET COUNT DECREASED [None]
  - PULMONARY VALVE INCOMPETENCE [None]
  - SOMNOLENCE [None]
  - SPEECH DISORDER [None]
  - SUBARACHNOID HAEMORRHAGE [None]
  - TRICUSPID VALVE INCOMPETENCE [None]
